FAERS Safety Report 6869918-4 (Version None)
Quarter: 2010Q3

REPORT INFORMATION
  Report Type: 
  Country: None (occurrence: None)
  Receive Date: 20100722
  Receipt Date: 20080905
  Transmission Date: 20110219
  Serious: No
  Sender: FDA-Public Use
  Company Number: US-PFIZER INC-2008074929

PATIENT
  Sex: Female
  Weight: 42.18 kg

DRUGS (3)
  1. CHANTIX [Suspect]
     Indication: SMOKING CESSATION THERAPY
     Route: 048
     Dates: start: 20080801
  2. IBANDRONATE SODIUM [Concomitant]
  3. VITAMINS [Concomitant]

REACTIONS (4)
  - CHILLS [None]
  - FLATULENCE [None]
  - NAUSEA [None]
  - SOMNOLENCE [None]
